FAERS Safety Report 7685599 (Version 5)
Quarter: 2013Q2

REPORT INFORMATION
  Report Type: Report from Study
  Country: IT (occurrence: IT)
  Receive Date: 20101129
  Receipt Date: 20130503
  Transmission Date: 20140414
  Serious: Yes (Death, Other)
  Sender: FDA-Public Use
  Company Number: IT-ROCHE-744239

PATIENT
  Sex: 0

DRUGS (10)
  1. TRETINOIN [Suspect]
     Indication: ACUTE PROMYELOCYTIC LEUKAEMIA
     Dosage: INDUCTION: UNTIL COMPLETE REMISSION OR FOR MAXIMUM 45 DAYS.
     Route: 048
  2. IDARUBICIN [Suspect]
     Indication: ACUTE PROMYELOCYTIC LEUKAEMIA
     Dosage: INDUCTION THERAPY: ON DAYS 2, 4, 6 AND 8.
     Route: 042
  3. IDARUBICIN [Suspect]
     Dosage: CONSOLIDATION COURSE 1: ON DAYS 1, 2, 3 AND 4
     Route: 042
  4. IDARUBICIN [Suspect]
     Dosage: CONSOLIDATION THERAPY: COURSE 3: ON DAY 1
     Route: 042
  5. MITOXANTRONE [Suspect]
     Indication: ACUTE PROMYELOCYTIC LEUKAEMIA
     Dosage: CONSOLIDATION: COURSE 2: DAYS 1-5
     Route: 065
  6. 6-THIOGUANINE [Suspect]
     Indication: ACUTE PROMYELOCYTIC LEUKAEMIA
     Dosage: CONSOLIDATION: COURSE 3: DAYS 1-5
     Route: 065
  7. CYTARABINE [Suspect]
     Indication: ACUTE PROMYELOCYTIC LEUKAEMIA
     Dosage: CONSOLIDATION: COURSE 1: DAYS 1-4.
     Route: 065
  8. CYTARABINE [Suspect]
     Dosage: CONSOLIDATION: COURSE 3: DAYS 1-5
     Route: 065
  9. ETOPOSIDE [Suspect]
     Indication: ACUTE PROMYELOCYTIC LEUKAEMIA
     Dosage: CONSOLIDATION: COURSE 2: DAYS 1-5
     Route: 065
  10. PREDNISONE [Concomitant]
     Indication: PROPHYLAXIS
     Dosage: DURING INDUCTION THERAPY
     Route: 065

REACTIONS (10)
  - Death [Fatal]
  - Haemorrhage [Fatal]
  - Infection [Fatal]
  - Embolism [Fatal]
  - Myocardial infarction [Fatal]
  - Renal failure [Fatal]
  - Acute promyelocytic leukaemia differentiation syndrome [Fatal]
  - Benign intracranial hypertension [Unknown]
  - Neutropenia [Unknown]
  - Pyrexia [Unknown]
